FAERS Safety Report 6748413-7 (Version None)
Quarter: 2010Q2

REPORT INFORMATION
  Report Type: 
  Country: None (occurrence: None)
  Receive Date: 20100527
  Receipt Date: 20100527
  Transmission Date: 20101027
  Serious: Yes (Life-Threatening)
  Sender: FDA-Public Use
  Company Number: None

PATIENT
  Sex: Female
  Weight: 64.4108 kg

DRUGS (1)
  1. AZILECT [Suspect]
     Dosage: 1MG 1X DAY
     Dates: start: 20091101, end: 20100320

REACTIONS (3)
  - FALL [None]
  - HYPOTENSION [None]
  - SYNCOPE [None]
